FAERS Safety Report 7659114-5 (Version None)
Quarter: 2011Q3

REPORT INFORMATION
  Report Type: 
  Country: None (occurrence: None)
  Receive Date: 20110805
  Receipt Date: 20110719
  Transmission Date: 20111222
  Serious: Yes (Hospitalization)
  Sender: FDA-Public Use
  Company Number: US-GLAXOSMITHKLINE-A0878762A

PATIENT
  Age: 78 Year
  Sex: Male

DRUGS (1)
  1. AVANDIA [Suspect]
     Indication: DIABETES MELLITUS
     Dosage: 4MG PER DAY
     Route: 048
     Dates: start: 20050401, end: 20051201

REACTIONS (8)
  - VENTRICULAR TACHYCARDIA [None]
  - FLUID RETENTION [None]
  - CORONARY ARTERY DISEASE [None]
  - VENTRICULAR FIBRILLATION [None]
  - FLUID OVERLOAD [None]
  - CARDIAC ARREST [None]
  - SUPRAVENTRICULAR TACHYCARDIA [None]
  - MYOCARDIAL INFARCTION [None]
